FAERS Safety Report 23655977 (Version 8)
Quarter: 2024Q4

REPORT INFORMATION
  Report Type: Spontaneous
  Country: CA (occurrence: CA)
  Receive Date: 20240321
  Receipt Date: 20241227
  Transmission Date: 20250115
  Serious: Yes (Other)
  Sender: CELLTRION
  Company Number: CA-CELLTRION INC.-2024CA005113

PATIENT

DRUGS (9)
  1. INFLECTRA [Suspect]
     Active Substance: INFLIXIMAB-DYYB
     Indication: Ankylosing spondylitis
     Dosage: 5 MG/KG, INDUCTION WEEKS 0, 2, 6 MAINTENANCE Q 8 WEEKS
     Route: 042
     Dates: start: 20230619
  2. INFLECTRA [Suspect]
     Active Substance: INFLIXIMAB-DYYB
     Dosage: 5 MG/KG (INDUCTION WEEKS 0, 2, 6 MAINTENANCE Q 8 WEEKS)
     Route: 042
     Dates: start: 20240118
  3. INFLECTRA [Suspect]
     Active Substance: INFLIXIMAB-DYYB
     Dosage: 5 MG/KG (305MG), AFTER 14 WEEKS AND 5 DAYS (PRESCRIBED EVERY 8 WEEKS)
     Route: 042
     Dates: start: 20240430
  4. INFLECTRA [Suspect]
     Active Substance: INFLIXIMAB-DYYB
     Dosage: 5 MG/KG (305MG), AFTER 8 WEEKS AND 2 DAY (PRESCRIBED EVERY 8 WEEKS)
     Route: 042
     Dates: start: 20240627
  5. INFLECTRA [Suspect]
     Active Substance: INFLIXIMAB-DYYB
     Dosage: 5 MG, INDUCTION WEEKS 0, 2, 6 MAINTENANCE Q 8 WEEKS
     Route: 042
     Dates: start: 20240822
  6. INFLECTRA [Suspect]
     Active Substance: INFLIXIMAB-DYYB
     Dosage: 320 MG AFTER AFTER 7 WEEKS AND 6 DAYS (5 MG/KG, INDUCTION WEEKS 0, 2, 6 MAINTENANCE Q 8 WEEKS)
     Route: 042
     Dates: start: 20241016
  7. INFLECTRA [Suspect]
     Active Substance: INFLIXIMAB-DYYB
     Dosage: 630 MG, (10MG/KG), STAT DOSE (2 WEEKS + 5 DAYS AFTER) THEN 5 MG/KG EVERY 6 WEEKS
     Route: 042
     Dates: start: 20241104
  8. INFLECTRA [Suspect]
     Active Substance: INFLIXIMAB-DYYB
     Dosage: 310 MG 6 WEEKS (5 MG/KG EVERY 6 WEEKS RESCUE DOSE ASAP 10 MG /KG)
     Route: 042
     Dates: start: 20241218
  9. ENTOCORT [Concomitant]
     Active Substance: BUDESONIDE
     Dosage: 1 DF
     Dates: start: 20220405

REACTIONS (11)
  - Bile duct stone [Not Recovered/Not Resolved]
  - Crohn^s disease [Recovering/Resolving]
  - Liver function test increased [Recovering/Resolving]
  - Pain [Unknown]
  - Cholelithiasis [Unknown]
  - Drug level decreased [Unknown]
  - Liver disorder [Not Recovered/Not Resolved]
  - Aphthous ulcer [Recovered/Resolved]
  - Abscess [Recovered/Resolved]
  - Inappropriate schedule of product administration [Unknown]
  - Off label use [Unknown]

NARRATIVE: CASE EVENT DATE: 20240101
